FAERS Safety Report 26122817 (Version 1)
Quarter: 2025Q4

REPORT INFORMATION
  Report Type: Spontaneous
  Country: CA (occurrence: CA)
  Receive Date: 20251204
  Receipt Date: 20251204
  Transmission Date: 20260118
  Serious: Yes (Other)
  Sender: CSL BEHRING
  Company Number: CA-BEH-2025227485

PATIENT
  Age: 72 Year
  Sex: Female

DRUGS (1)
  1. PRIVIGEN [Suspect]
     Active Substance: HUMAN IMMUNOGLOBULIN G
     Indication: Immune thrombocytopenia
     Dosage: 10 G
     Route: 041

REACTIONS (11)
  - Allergic transfusion reaction [Unknown]
  - Haemoglobinuria [Unknown]
  - Haematuria [Unknown]
  - Chills [Unknown]
  - Eye pain [Unknown]
  - Abdominal pain [Unknown]
  - Chromaturia [Unknown]
  - Malaise [Unknown]
  - Nausea [Unknown]
  - Vomiting [Unknown]
  - Febrile nonhaemolytic transfusion reaction [Unknown]
